FAERS Safety Report 9330575 (Version 1)
Quarter: 2013Q2

REPORT INFORMATION
  Report Type: Spontaneous
  Country: SE (occurrence: SE)
  Receive Date: 20130605
  Receipt Date: 20130605
  Transmission Date: 20140414
  Serious: Yes (Other)
  Sender: FDA-Public Use
  Company Number: PHHY2013SE055377

PATIENT
  Age: 10 Year
  Sex: Male

DRUGS (1)
  1. RITALINE [Suspect]
     Indication: ATTENTION DEFICIT/HYPERACTIVITY DISORDER
     Dosage: 10 MG, UNK
     Route: 048
     Dates: start: 20130306

REACTIONS (6)
  - Euphoric mood [Unknown]
  - Mania [Unknown]
  - Agitation [Unknown]
  - Depression [Unknown]
  - Tic [Unknown]
  - Logorrhoea [Unknown]
